FAERS Safety Report 7656177-8 (Version None)
Quarter: 2011Q3

REPORT INFORMATION
  Report Type: 
  Country: None (occurrence: None)
  Receive Date: 20110804
  Receipt Date: 20110726
  Transmission Date: 20111222
  Serious: Yes (Other)
  Sender: FDA-Public Use
  Company Number: JP-PFIZER INC-2011174484

PATIENT
  Age: 62 Year
  Sex: Male

DRUGS (20)
  1. LANSOPRAZOLE [Concomitant]
  2. VENOGLOBULIN [Concomitant]
  3. SIMULECT [Concomitant]
  4. LANTHANUM CARBONATE [Concomitant]
  5. PROGRAF [Interacting]
     Indication: IMMUNOSUPPRESSION
     Dosage: 12 MG/DAY IN 2 DIVIDED
     Route: 048
     Dates: start: 20110504, end: 20110506
  6. PROGRAF [Interacting]
     Dosage: INTRAVENOUS STARTED AT 17:00, DOSE UNKNOWN
     Route: 042
     Dates: start: 20110511
  7. PROGRAF [Interacting]
     Dosage: 0.2 MG X 2
     Dates: start: 20110501
  8. RABEPRAZOLE SODIUM [Concomitant]
  9. CELLCEPT [Concomitant]
  10. DOPAMINE [Concomitant]
  11. PREDNISOLONE [Concomitant]
  12. HUMULIN R [Concomitant]
  13. FUTHAN [Concomitant]
  14. PROGRAF [Interacting]
     Dosage: 1 MG WAS GIVEN 6:00 IN THE AM
     Route: 048
     Dates: start: 20110511
  15. ALLOID [Concomitant]
  16. NESPO ^AMGEN^ [Concomitant]
  17. PROGRAF [Interacting]
     Dosage: UNK
     Route: 048
     Dates: start: 20110507, end: 20110510
  18. PREDNISOLONE [Concomitant]
  19. AMIODARONE HCL [Suspect]
     Indication: ARRHYTHMIA
     Dosage: 200 MG/DAY BID
     Route: 048
     Dates: start: 20110201, end: 20110518
  20. TACROLIMUS [Interacting]
     Dosage: 0.5 MG X 1
     Dates: start: 20110513, end: 20110518

REACTIONS (3)
  - DRUG LEVEL INCREASED [None]
  - RENAL IMPAIRMENT [None]
  - DRUG INTERACTION [None]
